FAERS Safety Report 9744100 (Version 1)
Quarter: 2013Q4

REPORT INFORMATION
  Report Type: Report from Study
  Country: GB (occurrence: GB)
  Receive Date: 20131210
  Receipt Date: 20131210
  Transmission Date: 20140711
  Serious: Yes (Other)
  Sender: FDA-Public Use
  Company Number: GB-GLAXOSMITHKLINE-B0951936A

PATIENT
  Age: 15 Year
  Sex: Male

DRUGS (2)
  1. LAMIVUDINE-HBV [Suspect]
     Indication: CHRONIC HEPATITIS B
  2. PEGINTERFERON ALFA-2A [Suspect]
     Indication: CHRONIC HEPATITIS B

REACTIONS (1)
  - Eyelid oedema [Recovered/Resolved]
